FAERS Safety Report 7660010-8 (Version None)
Quarter: 2011Q3

REPORT INFORMATION
  Report Type: 
  Country: None (occurrence: None)
  Receive Date: 20110805
  Receipt Date: 20110726
  Transmission Date: 20111222
  Serious: No
  Sender: FDA-Public Use
  Company Number: US-B.I. PHARMACEUTICALS,INC./RIDGEFIELD-2011-BP-18543BP

PATIENT
  Sex: Male

DRUGS (14)
  1. PRADAXA [Suspect]
     Indication: ATRIAL FIBRILLATION
     Dosage: 300 MG
     Dates: start: 20101101
  2. PROPAFENONE HCL [Concomitant]
     Indication: ATRIAL FIBRILLATION
     Dosage: 300 MG
  3. POTASSIUM [Concomitant]
     Indication: SUPPLEMENTATION THERAPY
  4. LASIX [Concomitant]
     Indication: OEDEMA PERIPHERAL
     Dosage: 80 MG
  5. FISH OIL [Concomitant]
     Dosage: 3000 MG
  6. PANTOPRAZOLE [Concomitant]
     Indication: ABDOMINAL DISCOMFORT
  7. TOPAMAX [Concomitant]
     Dosage: 50 MG
  8. ABILIFY [Concomitant]
     Dosage: 10 MG
  9. LAMICTAL [Concomitant]
     Dosage: 400 MG
  10. DIAZEPAM [Concomitant]
     Dosage: 4 MG
  11. NUVIGIL [Concomitant]
     Dosage: 250 MG
  12. HYDROCODONE [Concomitant]
     Indication: NEUROPATHY PERIPHERAL
  13. DILAUDID [Concomitant]
     Indication: BACK PAIN
  14. BYSTOLIC [Concomitant]
     Dosage: 10 MG

REACTIONS (2)
  - ANAL HAEMORRHAGE [None]
  - ANORECTAL DISCOMFORT [None]
